FAERS Safety Report 5264896-6 (Version None)
Quarter: 2007Q1

REPORT INFORMATION
  Report Type: 
  Country: None (occurrence: None)
  Receive Date: 20070314
  Receipt Date: 20070305
  Transmission Date: 20070707
  Serious: Yes (Hospitalization)
  Sender: FDA-Public Use
  Company Number: HQWYE700205MAR07

PATIENT
  Age: 53 Year
  Sex: Male

DRUGS (3)
  1. INIPOMP [Suspect]
     Dosage: DOSE AND FREQUENCY UNSPECIFIED
     Route: 048
     Dates: end: 20070105
  2. DETENSIEL [Concomitant]
     Indication: ESSENTIAL HYPERTENSION
     Dosage: DOSE AND FREQUENCY UNSPECIFIED
     Route: 048
     Dates: start: 20010101
  3. AMOXICILLIN TRIHYDRATE [Suspect]
     Indication: DENTAL DISCOMFORT
     Dosage: DOSE AND FREQUENCY UNSPECIFIED
     Route: 048
     Dates: start: 20061229, end: 20070105

REACTIONS (1)
  - RENAL FAILURE ACUTE [None]
